FAERS Safety Report 9017627 (Version 2)
Quarter: 2015Q1

REPORT INFORMATION
  Report Type: Spontaneous
  Country: FR (occurrence: FR)
  Receive Date: 20130117
  Receipt Date: 20150220
  Transmission Date: 20150721
  Serious: Yes (Hospitalization)
  Sender: FDA-Public Use
  Company Number: FR-PFIZER INC-2013017317

PATIENT
  Age: 60 Year
  Sex: Male

DRUGS (4)
  1. CLINDAMYCIN [Suspect]
     Active Substance: CLINDAMYCIN\CLINDAMYCIN PHOSPHATE
     Indication: OSTEITIS
  2. CLINDAMYCIN [Suspect]
     Active Substance: CLINDAMYCIN\CLINDAMYCIN PHOSPHATE
     Indication: FISTULA
     Dosage: 900 MG, 3X/DAY
     Route: 042
     Dates: start: 20121129, end: 20121207
  3. TARGOCID [Suspect]
     Active Substance: TEICOPLANIN
     Indication: FISTULA
     Dosage: 400 MG, 2X/DAY
     Route: 042
     Dates: start: 20121129, end: 20121207
  4. TARGOCID [Suspect]
     Active Substance: TEICOPLANIN
     Indication: OSTEITIS

REACTIONS (4)
  - Blood creatine increased [Recovered/Resolved]
  - Pyrexia [Recovered/Resolved]
  - Dermatitis exfoliative [Recovered/Resolved]
  - Eosinophilia [Recovered/Resolved]

NARRATIVE: CASE EVENT DATE: 20121205
